FAERS Safety Report 26089924 (Version 1)
Quarter: 2025Q4

REPORT INFORMATION
  Report Type: Report from Study
  Country: US (occurrence: US)
  Receive Date: 20251126
  Receipt Date: 20251126
  Transmission Date: 20260117
  Serious: Yes (Other)
  Sender: CSL BEHRING
  Company Number: US-CSL-12292

PATIENT
  Age: 47 Year
  Sex: Female

DRUGS (1)
  1. HIZENTRA [Suspect]
     Active Substance: HUMAN IMMUNOGLOBULIN G
     Indication: Product used for unknown indication
     Dosage: 20 G, QW
     Route: 058

REACTIONS (2)
  - Laboratory test abnormal [Unknown]
  - Nodule [Unknown]
